FAERS Safety Report 9360786 (Version 2)
Quarter: 2013Q2

REPORT INFORMATION
  Report Type: Spontaneous
  Country: BR (occurrence: None)
  Receive Date: 20130618
  Receipt Date: 20130621
  Transmission Date: 20140414
  Serious: Yes (Hospitalization, Other)
  Sender: FDA-Public Use
  Company Number: AUR-APL-2013-04984

PATIENT
  Age: 57 Year
  Sex: Male
  Weight: 57 kg

DRUGS (8)
  1. CIPROFLOXACIN (CIPROFLOXACIN) [Suspect]
     Indication: NOSOCOMIAL INFECTION
  2. ENBREL [Suspect]
     Indication: RHEUMATOID ARTHRITIS
     Dosage: (50 MG, 1 WK), SUBCUTANEOUS
     Route: 058
     Dates: start: 201302, end: 20130405
  3. ARAVA (LEFLUNOMIDE) [Concomitant]
  4. PREDNISONE (PREDNISONE) [Concomitant]
  5. FOLIC ACID (FOLIC ACID) [Concomitant]
  6. PARACETAMOL (PARACETAMOL) [Concomitant]
  7. ULTRACET (ULTRACET) [Concomitant]
  8. GABAPENTIN (GABAPENTIN) [Concomitant]

REACTIONS (6)
  - Anaemia [None]
  - Immunodeficiency [None]
  - Nosocomial infection [None]
  - Weight decreased [None]
  - Intervertebral disc protrusion [None]
  - Drug ineffective [None]
